FAERS Safety Report 7518034-7 (Version None)
Quarter: 2011Q2

REPORT INFORMATION
  Report Type: 
  Country: None (occurrence: None)
  Receive Date: 20110523
  Receipt Date: 20110509
  Transmission Date: 20111010
  Serious: Yes (Other)
  Sender: FDA-Public Use
  Company Number: 2011KMA005693

PATIENT
  Age: 3 Month
  Sex: Male

DRUGS (1)
  1. CLONIDINE HCL [Suspect]
     Indication: DRUG WITHDRAWAL SYNDROME NEONATAL
     Dosage: 15 MCG, BID, PO
     Route: 048

REACTIONS (5)
  - TACHYCARDIA [None]
  - HYPERTENSION [None]
  - WITHDRAWAL SYNDROME [None]
  - TREMOR [None]
  - IRRITABILITY [None]
